FAERS Safety Report 6360507-7 (Version None)
Quarter: 2009Q3

REPORT INFORMATION
  Report Type: 
  Country: None (occurrence: None)
  Receive Date: 20090917
  Receipt Date: 20090902
  Transmission Date: 20100115
  Serious: Yes (Other)
  Sender: FDA-Public Use
  Company Number: DK-GENENTECH-290412

PATIENT

DRUGS (4)
  1. ACTIVASE [Suspect]
     Indication: DEEP VEIN THROMBOSIS
     Dosage: UNK
     Route: 042
  2. ACTIVASE [Suspect]
     Dosage: 1.2 MG/HR, UNK
     Route: 042
  3. HEPARIN [Suspect]
     Indication: DEEP VEIN THROMBOSIS
     Dosage: UNK IU, UNK
     Route: 042
  4. HEPARIN [Suspect]
     Dosage: UNK
     Route: 042

REACTIONS (2)
  - COMPARTMENT SYNDROME [None]
  - PUNCTURE SITE HAEMORRHAGE [None]
